FAERS Safety Report 9687459 (Version 1)
Quarter: 2013Q4

REPORT INFORMATION
  Report Type: Spontaneous
  Country: US (occurrence: US)
  Receive Date: 20131114
  Receipt Date: 20131114
  Transmission Date: 20140711
  Serious: No
  Sender: FDA-Public Use
  Company Number: US-BIOGENIDEC-2013BI107502

PATIENT
  Sex: Female

DRUGS (2)
  1. AVONEX [Suspect]
     Indication: MULTIPLE SCLEROSIS
     Route: 030
     Dates: start: 20000801, end: 2012
  2. TYSABRI [Concomitant]
     Indication: MULTIPLE SCLEROSIS
     Route: 042
     Dates: start: 20120604

REACTIONS (8)
  - Vision blurred [Recovered/Resolved]
  - Tremor [Recovered/Resolved]
  - Hyperacusis [Recovered/Resolved]
  - Sensory disturbance [Recovered/Resolved]
  - Weight increased [Recovered/Resolved]
  - Central nervous system lesion [Unknown]
  - Muscle spasticity [Recovered/Resolved]
  - Anxiety [Recovered/Resolved]
